FAERS Safety Report 10733424 (Version 1)
Quarter: 2015Q1

REPORT INFORMATION
  Report Type: Spontaneous
  Country: VE (occurrence: VE)
  Receive Date: 20150123
  Receipt Date: 20150123
  Transmission Date: 20150721
  Serious: Yes (Hospitalization)
  Sender: FDA-Public Use
  Company Number: PHHY2015VE009023

PATIENT
  Age: 41 Year
  Sex: Female

DRUGS (2)
  1. DILANTIN [Concomitant]
     Active Substance: PHENYTOIN
     Indication: PRODUCT USED FOR UNKNOWN INDICATION
     Dosage: 100 MG, QD
     Route: 065
     Dates: start: 2012
  2. TEGRETOL [Suspect]
     Active Substance: CARBAMAZEPINE
     Indication: PITUITARY TUMOUR
     Dosage: 600 MG, QD
     Route: 048
     Dates: start: 201208, end: 20150121

REACTIONS (5)
  - Fear [Unknown]
  - Logorrhoea [Unknown]
  - Off label use [Unknown]
  - Seizure [Unknown]
  - Dizziness [Unknown]

NARRATIVE: CASE EVENT DATE: 20131215
